FAERS Safety Report 11488383 (Version 1)
Quarter: 2015Q3

REPORT INFORMATION
  Report Type: Spontaneous
  Country: US (occurrence: US)
  Receive Date: 20150909
  Receipt Date: 20150909
  Transmission Date: 20151125
  Serious: No
  Sender: FDA-Public Use
  Company Number: US-JAZZ-2015-US-004137

PATIENT
  Age: 46 Year
  Sex: Male

DRUGS (2)
  1. DIAZEPAM. [Concomitant]
     Active Substance: DIAZEPAM
     Indication: PRODUCT USED FOR UNKNOWN INDICATION
     Dosage: UNK
     Dates: start: 20150311
  2. XYREM [Suspect]
     Active Substance: SODIUM OXYBATE
     Indication: NARCOLEPSY
     Dosage: 3 G, BID
     Route: 048
     Dates: start: 20150314

REACTIONS (6)
  - Fatigue [Not Recovered/Not Resolved]
  - Wrong technique in product usage process [Unknown]
  - Anxiety [Not Recovered/Not Resolved]
  - Seasonal allergy [Unknown]
  - Sluggishness [Not Recovered/Not Resolved]
  - Somnolence [Not Recovered/Not Resolved]

NARRATIVE: CASE EVENT DATE: 201503
